FAERS Safety Report 8155403-9 (Version None)
Quarter: 2012Q1

REPORT INFORMATION
  Report Type: 
  Country: None (occurrence: None)
  Receive Date: 20120222
  Receipt Date: 20120207
  Transmission Date: 20120608
  Serious: Yes (Other)
  Sender: FDA-Public Use
  Company Number: DE-RANBAXY-2012RR-52809

PATIENT
  Sex: Female
  Weight: 3.37 kg

DRUGS (2)
  1. FOLSAURE RATIOPHARM [Concomitant]
     Indication: PROPHYLAXIS OF NEURAL TUBE DEFECT
     Dosage: 0.4 MG/DAY, IN THE 1ST TRIMESTER
     Route: 064
  2. SERTRALINE HYDROCHLORIDE [Suspect]
     Dosage: 100 MG/DAY MAXIMUM, 0 - 37.6 GESTATIONAL WEEK
     Route: 064
     Dates: start: 20101120, end: 20110812

REACTIONS (1)
  - MYOCLONUS [None]
